FAERS Safety Report 24008631 (Version 1)
Quarter: 2024Q2

REPORT INFORMATION
  Report Type: Spontaneous
  Country: US (occurrence: US)
  Receive Date: 20240625
  Receipt Date: 20240625
  Transmission Date: 20240716
  Serious: No
  Sender: FDA-Public Use
  Company Number: US-SANDOZ-SDZ2023US045498

PATIENT
  Age: 13 Year
  Sex: Male

DRUGS (2)
  1. OMNITROPE [Suspect]
     Active Substance: SOMATROPIN
     Indication: Growth hormone deficiency
     Dosage: UNK
     Route: 065
     Dates: start: 20231012
  2. OMNITROPE [Suspect]
     Active Substance: SOMATROPIN
     Indication: Growth hormone deficiency
     Dosage: UNK
     Route: 065
     Dates: start: 20231012

REACTIONS (1)
  - Device breakage [Unknown]

NARRATIVE: CASE EVENT DATE: 20231012
